FAERS Safety Report 9632347 (Version 1)
Quarter: 2013Q4

REPORT INFORMATION
  Report Type: Spontaneous
  Country: RS (occurrence: RS)
  Receive Date: 20131018
  Receipt Date: 20131018
  Transmission Date: 20140711
  Serious: Yes (Other)
  Sender: FDA-Public Use
  Company Number: RS-ACTAVIS-2013-18844

PATIENT
  Age: 47 Year
  Sex: Male

DRUGS (2)
  1. CIPROCINAL [Suspect]
     Indication: COUGH
     Dosage: 1000 MG, DAILY
     Route: 048
     Dates: start: 201309
  2. CIPROCINAL [Suspect]
     Indication: PROSTATE TENDERNESS

REACTIONS (3)
  - Dyspnoea [Recovered/Resolved]
  - Choking [Recovered/Resolved]
  - Generalised erythema [Recovered/Resolved]
